FAERS Safety Report 5644098-1 (Version None)
Quarter: 2008Q1

REPORT INFORMATION
  Report Type: 
  Country: None (occurrence: None)
  Receive Date: 20080226
  Receipt Date: 20080211
  Transmission Date: 20080703
  Serious: Yes (Other)
  Sender: FDA-Public Use
  Company Number: 2008003676

PATIENT
  Sex: Male

DRUGS (1)
  1. BENGAY MUSCLE PAIN ULTRA STRENGTH (MENTHOL, CAMPHOR, METHYL SALICYLATE [Suspect]
     Indication: JOINT INJURY
     Dosage: TOPICAL
     Route: 061

REACTIONS (4)
  - ERYTHEMA [None]
  - PAIN IN EXTREMITY [None]
  - PARAESTHESIA [None]
  - SENSORY DISTURBANCE [None]
